FAERS Safety Report 22349171 (Version 1)
Quarter: 2023Q2

REPORT INFORMATION
  Report Type: Spontaneous
  Country: IE (occurrence: IE)
  Receive Date: 20230522
  Receipt Date: 20230522
  Transmission Date: 20230722
  Serious: Yes (Death)
  Sender: FDA-Public Use
  Company Number: IE-ASTELLAS-2023US015512

PATIENT
  Sex: Male

DRUGS (1)
  1. ISAVUCONAZOLE [Suspect]
     Active Substance: ISAVUCONAZOLE
     Indication: Fungal infection
     Dosage: UNK, UNKNOWN FREQ.
     Route: 048

REACTIONS (3)
  - Oncologic complication [Fatal]
  - Product administered to patient of inappropriate age [Unknown]
  - Off label use [Unknown]
